FAERS Safety Report 13853344 (Version 1)
Quarter: 2017Q3

REPORT INFORMATION
  Report Type: Spontaneous
  Country: US (occurrence: US)
  Receive Date: 20170809
  Receipt Date: 20170809
  Transmission Date: 20171127
  Serious: No
  Sender: FDA-Public Use
  Company Number: GXBR2016US003287

PATIENT
  Sex: Female
  Weight: 81.6 kg

DRUGS (2)
  1. NADOLOL. [Suspect]
     Active Substance: NADOLOL
     Dosage: 1 DF, QD
     Route: 048
  2. NADOLOL. [Suspect]
     Active Substance: NADOLOL
     Indication: TACHYCARDIA
     Dosage: 0.5 DF (20 MG), QD (AT 4 PM)
     Route: 048

REACTIONS (3)
  - Tachycardia [Recovered/Resolved]
  - Drug ineffective [Unknown]
  - Incorrect dose administered [Recovered/Resolved]
